FAERS Safety Report 21959125 (Version 1)
Quarter: 2023Q1

REPORT INFORMATION
  Report Type: Spontaneous
  Country: CH (occurrence: None)
  Receive Date: 20230206
  Receipt Date: 20230206
  Transmission Date: 20230418
  Serious: Yes (Other)
  Sender: FDA-Public Use
  Company Number: 2023A030541

PATIENT
  Age: 86 Year
  Sex: Female

DRUGS (22)
  1. OMEPRAZOLE [Suspect]
     Active Substance: OMEPRAZOLE
     Dates: start: 20221228
  2. CALCIUM CARBONATE [Suspect]
     Active Substance: CALCIUM CARBONATE
  3. ASPIRIN [Suspect]
     Active Substance: ASPIRIN
     Dates: start: 202207
  4. ATORVASTATIN [Suspect]
     Active Substance: ATORVASTATIN
     Dates: start: 202207
  5. TRAMADOL [Suspect]
     Active Substance: TRAMADOL
     Dates: start: 2022, end: 20221228
  6. HERBALS [Suspect]
     Active Substance: HERBALS
     Dates: start: 2022, end: 20221228
  7. CALCIPARINE [Concomitant]
     Active Substance: HEPARIN CALCIUM
     Dates: start: 20230112, end: 20230112
  8. NOVORAPID [Concomitant]
     Active Substance: INSULIN ASPART
  9. LANTUS [Concomitant]
     Active Substance: INSULIN GLARGINE
  10. ENOXAPARIN SODIUM [Concomitant]
     Active Substance: ENOXAPARIN SODIUM
  11. FOLIC ACID [Concomitant]
     Active Substance: FOLIC ACID
  12. AMLODIPINE [Concomitant]
     Active Substance: AMLODIPINE BESYLATE
  13. ATENOLOL [Concomitant]
     Active Substance: ATENOLOL
  14. BROMAZEPAM [Concomitant]
     Active Substance: BROMAZEPAM
  15. ROCALTROL [Concomitant]
     Active Substance: CALCITRIOL
  16. MAGNESIUM ASPARTATE [Concomitant]
     Active Substance: MAGNESIUM ASPARTATE
  17. VOTUM [Concomitant]
  18. DAFALGAN [Concomitant]
     Active Substance: ACETAMINOPHEN
  19. POTASSIUM CHLORIDE [Concomitant]
     Active Substance: POTASSIUM CHLORIDE
  20. VENLAFAXINE [Concomitant]
     Active Substance: VENLAFAXINE HYDROCHLORIDE
  21. KLEAN-PREP [Concomitant]
     Active Substance: ELECTROLYTES NOS\POLYETHYLENE GLYCOL 3350
  22. METFORMIN SITAGLIPTIN [Concomitant]

REACTIONS (4)
  - Duodenitis [Not Recovered/Not Resolved]
  - Eosinophilic colitis [Not Recovered/Not Resolved]
  - Nausea [Unknown]
  - Vomiting [Unknown]

NARRATIVE: CASE EVENT DATE: 20220101
